FAERS Safety Report 15357743 (Version 1)
Quarter: 2018Q3

REPORT INFORMATION
  Report Type: Spontaneous
  Country: US (occurrence: US)
  Receive Date: 20180906
  Receipt Date: 20180906
  Transmission Date: 20181010
  Serious: Yes (Other)
  Sender: FDA-Public Use
  Company Number: US-TEVA-2018-US-949782

PATIENT
  Age: 15 Year
  Sex: Male

DRUGS (1)
  1. CLARAVIS [Suspect]
     Active Substance: ISOTRETINOIN
     Route: 065

REACTIONS (8)
  - Ligament laxity [Unknown]
  - Constipation [Unknown]
  - Growth retardation [Unknown]
  - Diarrhoea [Unknown]
  - Acne cystic [Unknown]
  - Functional gastrointestinal disorder [Unknown]
  - Onychoclasis [Unknown]
  - Nail bed infection [Unknown]
